FAERS Safety Report 12497453 (Version 2)
Quarter: 2016Q3

REPORT INFORMATION
  Report Type: Spontaneous
  Country: BR (occurrence: BR)
  Receive Date: 20160624
  Receipt Date: 20160825
  Transmission Date: 20161109
  Serious: Yes (Other)
  Sender: FDA-Public Use
  Company Number: BR-JNJFOC-20160618000

PATIENT
  Age: 73 Year
  Sex: Female
  Weight: 78 kg

DRUGS (7)
  1. GLIFAGE [Concomitant]
     Active Substance: METFORMIN HYDROCHLORIDE
     Route: 065
  2. LANTUS [Concomitant]
     Active Substance: INSULIN GLARGINE
     Route: 065
  3. SIMPONI [Suspect]
     Active Substance: GOLIMUMAB
     Indication: RHEUMATOID ARTHRITIS
     Route: 058
     Dates: start: 20150430, end: 20160528
  4. SERTRALINE [Concomitant]
     Active Substance: SERTRALINE HYDROCHLORIDE
     Route: 065
  5. LOSARTAN. [Suspect]
     Active Substance: LOSARTAN
     Indication: PRODUCT USED FOR UNKNOWN INDICATION
     Route: 065
  6. MIOSAN [Concomitant]
     Active Substance: CYCLOBENZAPRINE
     Route: 065
  7. TYLEX [Concomitant]
     Active Substance: ACETAMINOPHEN\CODEINE PHOSPHATE
     Route: 065

REACTIONS (3)
  - Infection [Recovering/Resolving]
  - Drug ineffective [Unknown]
  - Rheumatic disorder [Recovering/Resolving]

NARRATIVE: CASE EVENT DATE: 201605
